APPROVED DRUG PRODUCT: NUTRACORT
Active Ingredient: HYDROCORTISONE
Strength: 1% **Federal Register determination that product was not discontinued or withdrawn for safety or effectiveness reasons**
Dosage Form/Route: GEL;TOPICAL
Application: A084698 | Product #001
Applicant: HEALTHPOINT LTD
Approved: Approved Prior to Jan 1, 1982 | RLD: Yes | RS: No | Type: DISCN